FAERS Safety Report 13237881 (Version 1)
Quarter: 2017Q1

REPORT INFORMATION
  Report Type: Spontaneous
  Country: DE (occurrence: DE)
  Receive Date: 20170216
  Receipt Date: 20170216
  Transmission Date: 20170428
  Serious: Yes (Hospitalization, Other)
  Sender: FDA-Public Use
  Company Number: DE-UCBSA-2017005660

PATIENT
  Age: 66 Year
  Sex: Female

DRUGS (2)
  1. LAMOTRIGINE. [Concomitant]
     Active Substance: LAMOTRIGINE
     Indication: PRODUCT USED FOR UNKNOWN INDICATION
     Dosage: UNK
  2. VIMPAT [Suspect]
     Active Substance: LACOSAMIDE
     Indication: PRODUCT USED FOR UNKNOWN INDICATION
     Dosage: UNK
     Dates: start: 201610

REACTIONS (4)
  - Orthostatic hypotension [Unknown]
  - Hypokalaemia [Unknown]
  - Circulatory collapse [Unknown]
  - Hyponatraemia [Unknown]

NARRATIVE: CASE EVENT DATE: 2016
